FAERS Safety Report 18975751 (Version 2)
Quarter: 2021Q1

REPORT INFORMATION
  Report Type: Spontaneous
  Country: DE (occurrence: DE)
  Receive Date: 20210305
  Receipt Date: 20210317
  Transmission Date: 20210420
  Serious: Yes (Other)
  Sender: FDA-Public Use
  Company Number: DE-BAUSCH-BL-2021-006645

PATIENT
  Age: 77 Year
  Sex: Female

DRUGS (6)
  1. PRED FORTE [Concomitant]
     Active Substance: PREDNISOLONE ACETATE
     Dosage: RE?STARTED SINCE 2 DAYS PRIOR TO DATE OF FOLLOW UP REPORT; 1 DROP IN THE LEFT EYE
     Route: 047
     Dates: start: 202103
  2. NEVANAC [Concomitant]
     Active Substance: NEPAFENAC
     Dosage: RE?STARTED SINCE 2 DAYS PRIOR TO DATE OF FOLLOW UP REPORT; 1 DROP IN LEFT EYE
     Route: 047
     Dates: start: 202103
  3. PRED FORTE [Concomitant]
     Active Substance: PREDNISOLONE ACETATE
     Indication: PRODUCT USED FOR UNKNOWN INDICATION
     Dosage: STOPPED 14 DAYS AGO PRIOR TO FOLLOW UP REPORT
     Route: 047
     Dates: end: 202102
  4. NEVANAC [Concomitant]
     Active Substance: NEPAFENAC
     Indication: PRODUCT USED FOR UNKNOWN INDICATION
     Dosage: STOPPED 14 DAYS AGO PRIOR TO FOLLOW UP REPORT
     Route: 047
     Dates: end: 202102
  5. OFLOXACIN?OPHTAL SINE 3MG/ML AUGENTROPFEN [Suspect]
     Active Substance: OFLOXACIN
     Dosage: 10X0.5 ML ONCE, 3 MG/ML AT ONCE
     Route: 047
     Dates: start: 202101, end: 202101
  6. OFLOXACIN?OPHTAL SINE 3MG/ML AUGENTROPFEN [Suspect]
     Active Substance: OFLOXACIN
     Indication: PREOPERATIVE CARE
     Dosage: 3 TO 5 TIMES WITHIN 14 DAYS BEFORE SCHEDULED SURGERY (LEFT EYE ONLY)
     Route: 047
     Dates: start: 202009, end: 2020

REACTIONS (3)
  - Vision blurred [Not Recovered/Not Resolved]
  - Retinal oedema [Not Recovered/Not Resolved]
  - Ocular discomfort [Unknown]

NARRATIVE: CASE EVENT DATE: 2021
